FAERS Safety Report 8451087-0 (Version None)
Quarter: 2012Q2

REPORT INFORMATION
  Report Type: 
  Country: None (occurrence: None)
  Receive Date: 20120620
  Receipt Date: 20120611
  Transmission Date: 20120825
  Serious: Yes (Other)
  Sender: FDA-Public Use
  Company Number: ES-ASTRAZENECA-2012SE39870

PATIENT
  Age: 76 Year

DRUGS (4)
  1. OMEPRAZOLE [Suspect]
     Route: 048
     Dates: end: 20110101
  2. ATORVASTATIN CALCIUM [Concomitant]
     Route: 048
  3. CANDESARTAN [Concomitant]
     Route: 048
  4. HYDROCHLOROTHIAZIDE [Concomitant]
     Route: 048

REACTIONS (4)
  - MUSCLE SPASMS [None]
  - PARAESTHESIA [None]
  - HYPOCALCAEMIA [None]
  - HYPOMAGNESAEMIA [None]
